FAERS Safety Report 12290331 (Version 1)
Quarter: 2016Q2

REPORT INFORMATION
  Report Type: Spontaneous
  Country: US (occurrence: US)
  Receive Date: 20160421
  Receipt Date: 20160421
  Transmission Date: 20160815
  Serious: Yes (Hospitalization)
  Sender: FDA-Public Use
  Company Number: US-DSJP-DSU-2015-132967

PATIENT

DRUGS (5)
  1. NEXIUM [Concomitant]
     Active Substance: ESOMEPRAZOLE MAGNESIUM
     Indication: NAUSEA
     Dosage: 40 MG, QD
     Route: 048
  2. TORADOL [Concomitant]
     Active Substance: KETOROLAC TROMETHAMINE
     Indication: BACK PAIN
     Dosage: 30 MG/ML, QD
  3. OMEPRAZOLE                         /00661203/ [Concomitant]
     Indication: NAUSEA
     Dosage: 40 MG, QD
     Route: 048
  4. KENALOG [Concomitant]
     Active Substance: TRIAMCINOLONE ACETONIDE
     Indication: BACK PAIN
     Dosage: 40 MG/ML, QD
  5. BENICAR [Suspect]
     Active Substance: OLMESARTAN MEDOXOMIL
     Indication: HYPERTENSION
     Dosage: 40 MG, QD
     Route: 048
     Dates: start: 20100928, end: 201308

REACTIONS (6)
  - Obstruction gastric [Not Recovered/Not Resolved]
  - Dizziness [Unknown]
  - Hiatus hernia [Unknown]
  - Malabsorption [Not Recovered/Not Resolved]
  - Duodenal stenosis [Unknown]
  - Anastomotic ulcer [Recovering/Resolving]

NARRATIVE: CASE EVENT DATE: 20110430
